FAERS Safety Report 4996108-2 (Version None)
Quarter: 2006Q1

REPORT INFORMATION
  Report Type: 
  Country: None (occurrence: None)
  Receive Date: 20060315
  Receipt Date: 20051213
  Transmission Date: 20060701
  Serious: Yes (Other)
  Sender: FDA-Public Use
  Company Number: 428743

PATIENT
  Sex: 0

DRUGS (1)
  1. BONIVA [Suspect]
     Dates: start: 20051121

REACTIONS (5)
  - PAIN [None]
  - PHOTOSENSITIVITY REACTION [None]
  - PYREXIA [None]
  - SUNBURN [None]
  - TREMOR [None]
